FAERS Safety Report 10240034 (Version 2)
Quarter: 2014Q2

REPORT INFORMATION
  Report Type: Spontaneous
  Country: US (occurrence: US)
  Receive Date: 20140617
  Receipt Date: 20140617
  Transmission Date: 20141212
  Serious: Yes (Life-Threatening, Hospitalization)
  Sender: FDA-Public Use
  Company Number: US-UCBSA-113447

PATIENT
  Age: 58 Year
  Sex: Female
  Weight: 51 kg

DRUGS (6)
  1. VIMPAT [Suspect]
     Indication: EPILEPSY
     Dosage: 200 MG, 2X/DAY (BID)
     Route: 048
     Dates: start: 20140207
  2. TEGRETOL [Concomitant]
     Indication: CONVULSION
     Dosage: 200, THRICE A DAY, TOTAL DAILY DOSAGE:600
     Route: 048
     Dates: end: 20140206
  3. KEPPRA [Concomitant]
     Indication: CONVULSION
     Dosage: 1500
     Route: 048
     Dates: start: 20140207, end: 201402
  4. CLONAZEPAM [Concomitant]
     Indication: CONVULSION
     Dosage: 2 MG, 2X/DAY (BID)
  5. CLONAZEPAM [Concomitant]
     Indication: AGITATION
  6. SYNTHROID [Concomitant]
     Indication: HYPOTHYROIDISM
     Dosage: 50 ONCE DAILY

REACTIONS (1)
  - Hyponatraemic encephalopathy [Not Recovered/Not Resolved]
